FAERS Safety Report 6748734-8 (Version None)
Quarter: 2010Q2

REPORT INFORMATION
  Report Type: 
  Country: None (occurrence: None)
  Receive Date: 20100601
  Receipt Date: 20100518
  Transmission Date: 20101027
  Serious: Yes (Hospitalization)
  Sender: FDA-Public Use
  Company Number: PHHY2010US32135

PATIENT
  Sex: Female

DRUGS (9)
  1. RECLAST [Suspect]
     Dosage: 5 MG, YEARLY
     Route: 042
     Dates: start: 20090701
  2. RECLAST [Suspect]
     Dosage: UNK
  3. FESOTERODINE [Concomitant]
  4. DRUGS AFFECTING BONE STRUCTURE AND MINERALIZA [Concomitant]
  5. TYLENOL [Concomitant]
  6. PERCOCET [Concomitant]
  7. ZOLOFT [Concomitant]
  8. VITAMINS [Concomitant]
  9. CITRACAL [Concomitant]

REACTIONS (2)
  - FALL [None]
  - LOWER LIMB FRACTURE [None]
